FAERS Safety Report 23928380 (Version 2)
Quarter: 2025Q3

REPORT INFORMATION
  Report Type: Spontaneous
  Country: US (occurrence: US)
  Receive Date: 20240531
  Receipt Date: 20250703
  Transmission Date: 20251020
  Serious: No
  Sender: RADIUS PHARM
  Company Number: US-RADIUS HEALTH INC.-2023US006640

PATIENT
  Age: 45 Year
  Sex: Female

DRUGS (1)
  1. TYMLOS [Suspect]
     Active Substance: ABALOPARATIDE
     Indication: Senile osteoporosis
     Route: 058
     Dates: start: 20231201

REACTIONS (13)
  - Dizziness [Unknown]
  - Headache [Unknown]
  - Arthralgia [Unknown]
  - Injection site pain [Unknown]
  - Injection site bruising [Unknown]
  - Injection site induration [Unknown]
  - Injection site haemorrhage [Unknown]
  - Fatigue [Unknown]
  - Somnolence [Unknown]
  - Drug intolerance [Unknown]
  - Bone pain [Unknown]
  - Heart rate increased [Unknown]
  - Product administered to patient of inappropriate age [Unknown]

NARRATIVE: CASE EVENT DATE: 20240401
